FAERS Safety Report 21378134 (Version 10)
Quarter: 2024Q4

REPORT INFORMATION
  Report Type: Report from Study
  Country: US (occurrence: US)
  Receive Date: 20220926
  Receipt Date: 20241210
  Transmission Date: 20250115
  Serious: Yes (Other)
  Sender: NOVARTIS
  Company Number: US-NOVARTISTESTPH-NVSC2022US216689

PATIENT
  Sex: Female

DRUGS (3)
  1. COSENTYX [Suspect]
     Active Substance: SECUKINUMAB
     Indication: Psoriasis
     Dosage: 300 MG, QMO
     Route: 058
  2. COSENTYX [Suspect]
     Active Substance: SECUKINUMAB
     Indication: Psoriatic arthropathy
     Dosage: UNK, QMO
     Route: 058
  3. COSENTYX [Suspect]
     Active Substance: SECUKINUMAB
     Dosage: UNK
     Route: 065

REACTIONS (6)
  - Adenocarcinoma [Unknown]
  - Female reproductive tract disorder [Unknown]
  - Pain [Unknown]
  - Depression [Unknown]
  - Musculoskeletal stiffness [Unknown]
  - Drug ineffective [Unknown]
